FAERS Safety Report 8198462-X (Version None)
Quarter: 2012Q1

REPORT INFORMATION
  Report Type: 
  Country: None (occurrence: None)
  Receive Date: 20120309
  Receipt Date: 20120306
  Transmission Date: 20120608
  Serious: Yes (Death, Hospitalization)
  Sender: FDA-Public Use
  Company Number: PHHY2012AR019702

PATIENT
  Age: 62 Year
  Sex: Male

DRUGS (1)
  1. ONBREZ [Suspect]
     Indication: LUNG DISORDER

REACTIONS (1)
  - CARDIAC ARREST [None]
